FAERS Safety Report 7679941-8 (Version None)
Quarter: 2011Q3

REPORT INFORMATION
  Report Type: 
  Country: None (occurrence: None)
  Receive Date: 20110812
  Receipt Date: 20110802
  Transmission Date: 20111222
  Serious: Yes (Other)
  Sender: FDA-Public Use
  Company Number: SK-JNJFOC-20110801663

PATIENT
  Sex: Male
  Weight: 77 kg

DRUGS (3)
  1. REMICADE [Suspect]
     Indication: CROHN'S DISEASE
     Route: 042
     Dates: start: 20080616, end: 20110713
  2. PENTASA [Concomitant]
     Indication: CROHN'S DISEASE
     Route: 065
     Dates: start: 19980323
  3. HYDROCORTISONE [Concomitant]
     Indication: PREMEDICATION
     Route: 042
     Dates: start: 20110713

REACTIONS (6)
  - HYPOTENSION [None]
  - CHEST PAIN [None]
  - INFUSION RELATED REACTION [None]
  - DYSPNOEA [None]
  - RASH [None]
  - PALPITATIONS [None]
